FAERS Safety Report 17074647 (Version 1)
Quarter: 2019Q4

REPORT INFORMATION
  Report Type: Spontaneous
  Country: DE (occurrence: DE)
  Receive Date: 20191126
  Receipt Date: 20191126
  Transmission Date: 20200122
  Serious: Yes (Hospitalization)
  Sender: FDA-Public Use
  Company Number: DE-MYLANLABS-2019M1113409

PATIENT
  Age: 94 Year
  Sex: Female

DRUGS (16)
  1. BELOC ZOK [Suspect]
     Active Substance: METOPROLOL SUCCINATE
     Indication: PRODUCT USED FOR UNKNOWN INDICATION
     Dosage: 47.5 MILLIGRAM, QD
     Route: 048
  2. OMEPRAZOL                          /00661201/ [Concomitant]
     Active Substance: OMEPRAZOLE
     Dosage: 20 MILLIGRAM, 2-0-0, TABLET
     Route: 048
  3. LASIX [Suspect]
     Active Substance: FUROSEMIDE
     Indication: PRODUCT USED FOR UNKNOWN INDICATION
     Dosage: 40 MILLIGRAM, 1-1/2-0, TABLET
     Route: 048
  4. VERRUMAL                           /00595501/ [Concomitant]
     Dosage: UNK UNK, Q3D
  5. ARTELAC                            /00445101/ [Concomitant]
     Active Substance: HYPROMELLOSES
     Dosage: 1-1-1, DROPS
     Route: 047
  6. LAXOBERAL [Concomitant]
     Active Substance: SODIUM PICOSULFATE
     Dosage: UNK UNK, 3XW, DROPS
     Route: 048
  7. AMLODIPINE [Suspect]
     Active Substance: AMLODIPINE BESYLATE
     Indication: PRODUCT USED FOR UNKNOWN INDICATION
     Dosage: 5 MILLIGRAM, 1-1-1, TABLETS
     Route: 048
  8. L-THYROXIN                         /00068002/ [Concomitant]
     Active Substance: LEVOTHYROXINE SODIUM
     Dosage: 25 ?G / TAG
     Route: 048
  9. MOVICOL [Concomitant]
     Active Substance: POLYETHYLENE GLYCOL 3350\POTASSIUM CHLORIDE\SODIUM BICARBONATE\SODIUM CHLORIDE
     Dosage: 1-0-0, POWDER
     Route: 048
  10. LYRICA [Concomitant]
     Active Substance: PREGABALIN
     Dosage: 75 MILLIGRAM,  1-0-1, TABLET
     Route: 048
  11. VIGANTOLETTEN [Concomitant]
     Active Substance: CHOLECALCIFEROL
     Dosage: 1000 IE, 1-0-0, TABLET
     Route: 048
  12. ELIQUIS [Concomitant]
     Active Substance: APIXABAN
     Dosage: 25 MILLIGRAM, 1-0-1, TABLET
     Route: 048
  13. NOVALGIN (METAMIZOLE SODIUM) [Suspect]
     Active Substance: METAMIZOLE SODIUM
     Indication: PRODUCT USED FOR UNKNOWN INDICATION
     Dosage: 500 MILLIGRAM, 1-1-1-1, TABLET
     Route: 048
  14. MIRTAZAPIN [Concomitant]
     Active Substance: MIRTAZAPINE
     Dosage: 15 MILLIGRAM,  0-0-0-1, TABLET
     Route: 048
  15. MAGNESIUM [Concomitant]
     Active Substance: MAGNESIUM
     Dosage: 1-0-0
     Route: 048
  16. CANDESARTAN. [Suspect]
     Active Substance: CANDESARTAN
     Indication: PRODUCT USED FOR UNKNOWN INDICATION
     Dosage: 16 MILLIGRAM, 1-0-1, TABLET
     Route: 048

REACTIONS (3)
  - Oedema peripheral [Unknown]
  - Medication error [Unknown]
  - Dyspnoea [Unknown]
